FAERS Safety Report 7383079-7 (Version None)
Quarter: 2011Q1

REPORT INFORMATION
  Report Type: 
  Country: None (occurrence: None)
  Receive Date: 20110330
  Receipt Date: 20110325
  Transmission Date: 20110831
  Serious: No
  Sender: FDA-Public Use
  Company Number: US-PFIZER INC-2011067420

PATIENT
  Sex: Female
  Weight: 179 kg

DRUGS (2)
  1. MORPHINE [Concomitant]
     Dosage: UNK
  2. RELISTOR [Suspect]
     Indication: CONSTIPATION
     Dosage: 24 MG EVERY THREE DAYS
     Dates: start: 20100101, end: 20110301

REACTIONS (1)
  - FEELING ABNORMAL [None]
